FAERS Safety Report 25096279 (Version 1)
Quarter: 2025Q1

REPORT INFORMATION
  Report Type: Spontaneous
  Country: BR (occurrence: BR)
  Receive Date: 20250319
  Receipt Date: 20250319
  Transmission Date: 20250409
  Serious: Yes (Death, Life-Threatening, Hospitalization)
  Sender: BAUSCH AND LOMB
  Company Number: BR-MLMSERVICE-20250312-PI441508-00117-6

PATIENT
  Age: 56 Year
  Sex: Male

DRUGS (3)
  1. DEXAMETHASONE [Suspect]
     Active Substance: DEXAMETHASONE
     Indication: COVID-19
     Dosage: ADMINISTERED FROM DAY 1 TO 48
     Route: 065
  2. HEPARIN [Concomitant]
     Active Substance: HEPARIN SODIUM
     Indication: Anticoagulant therapy
     Dosage: FROM DAY 9 TO DAY 14
  3. HEPARIN [Concomitant]
     Active Substance: HEPARIN SODIUM
     Dosage: FROM DAY 15 TO DAY 61

REACTIONS (1)
  - Bronchopulmonary aspergillosis [Fatal]
